FAERS Safety Report 5827581-5 (Version None)
Quarter: 2008Q3

REPORT INFORMATION
  Report Type: 
  Country: None (occurrence: None)
  Receive Date: 20080730
  Receipt Date: 20080728
  Transmission Date: 20090109
  Serious: Yes (Hospitalization)
  Sender: FDA-Public Use
  Company Number: US-BOEHRINGER INGELHEIM GMBH, GERMANY-2008-BP-11802BP

PATIENT
  Sex: Male

DRUGS (6)
  1. CLONIDINE HCL [Suspect]
  2. PEG-INTERFERON ALFA 2A (PEGASYS) [Suspect]
     Indication: HEPATITIS C VIRUS TEST
     Dates: start: 20080603, end: 20080628
  3. RIBAVIRIN [Suspect]
     Indication: HEPATITIS C VIRUS TEST
     Dates: start: 20070814, end: 20080628
  4. RIBAVIRIN [Suspect]
     Dates: start: 20080603, end: 20080628
  5. WELLBUTRIN [Concomitant]
  6. SEROQUEL [Concomitant]

REACTIONS (4)
  - EPISTAXIS [None]
  - HEPATITIS C [None]
  - RECTAL HAEMORRHAGE [None]
  - SUICIDE ATTEMPT [None]
